FAERS Safety Report 22012519 (Version 1)
Quarter: 2023Q1

REPORT INFORMATION
  Report Type: Spontaneous
  Country: IT (occurrence: IT)
  Receive Date: 20230220
  Receipt Date: 20230220
  Transmission Date: 20230417
  Serious: Yes (Hospitalization, Other)
  Sender: FDA-Public Use
  Company Number: IT-DSJP-DSJ-2023-105920

PATIENT
  Age: 82 Year
  Sex: Female

DRUGS (4)
  1. EDOXABAN [Suspect]
     Active Substance: EDOXABAN
     Indication: Atrial fibrillation
     Dosage: UNK
     Route: 065
  2. UNSPECIFIED INGREDIENT [Concomitant]
     Active Substance: UNSPECIFIED INGREDIENT
     Indication: Arrhythmia
     Dosage: UNK, AS NEEDED
     Route: 065
  3. RIVAROXABAN [Concomitant]
     Active Substance: RIVAROXABAN
     Indication: Atrial fibrillation
     Dosage: UNK
     Route: 065
  4. APIXABAN [Concomitant]
     Active Substance: APIXABAN
     Indication: Atrial fibrillation
     Dosage: 2.5 MG, BID
     Route: 065

REACTIONS (12)
  - Arterial thrombosis [Recovered/Resolved]
  - Arrhythmia [Unknown]
  - Mitral valve incompetence [Unknown]
  - Left atrial dilatation [Unknown]
  - Tricuspid valve incompetence [Unknown]
  - Pulmonary arterial hypertension [Unknown]
  - Right atrial dilatation [Unknown]
  - Pericardial disease [Unknown]
  - Inferior vena cava dilatation [Unknown]
  - Diastolic dysfunction [Unknown]
  - Left ventricular dysfunction [Unknown]
  - Drug intolerance [Unknown]
